FAERS Safety Report 10784383 (Version 1)
Quarter: 2015Q1

REPORT INFORMATION
  Report Type: Spontaneous
  Country: US (occurrence: None)
  Receive Date: 20150209
  Receipt Date: 20150209
  Transmission Date: 20150721
  Serious: No
  Sender: FDA-Public Use
  Company Number: None

PATIENT
  Age: 68 Year
  Sex: Female
  Weight: 70.76 kg

DRUGS (1)
  1. CLONIDINE. [Suspect]
     Active Substance: CLONIDINE
     Indication: HYPERTENSION
     Route: 048
     Dates: start: 20150126, end: 20150130

REACTIONS (4)
  - Product substitution issue [None]
  - Extrasystoles [None]
  - Blood pressure increased [None]
  - Stress [None]

NARRATIVE: CASE EVENT DATE: 20150126
